FAERS Safety Report 23983989 (Version 1)
Quarter: 2024Q2

REPORT INFORMATION
  Report Type: Spontaneous
  Country: JP (occurrence: JP)
  Receive Date: 20240618
  Receipt Date: 20240618
  Transmission Date: 20240716
  Serious: Yes (Other)
  Sender: FDA-Public Use
  Company Number: JP-SANDOZ INC.-SDZ2024JP057048

PATIENT
  Age: 66 Year
  Sex: Female

DRUGS (2)
  1. XYLOCAINE VISCOUS [Suspect]
     Active Substance: LIDOCAINE HYDROCHLORIDE
     Indication: Dyskinesia
     Dosage: UNK, 6-7 TIMES A DAY
     Route: 002
  2. XYLOCAINE VISCOUS [Suspect]
     Active Substance: LIDOCAINE HYDROCHLORIDE
     Indication: Somatic symptom disorder

REACTIONS (3)
  - Drug dependence [Unknown]
  - Feeling abnormal [Unknown]
  - Overdose [Unknown]
